FAERS Safety Report 18908075 (Version 1)
Quarter: 2021Q1

REPORT INFORMATION
  Report Type: Spontaneous
  Country: DE (occurrence: DE)
  Receive Date: 20210218
  Receipt Date: 20210218
  Transmission Date: 20210420
  Serious: Yes (Hospitalization, Other)
  Sender: FDA-Public Use
  Company Number: DE-TEVA-2021-DE-1880445

PATIENT
  Age: 50 Year
  Sex: Female

DRUGS (9)
  1. DOXORUBICIN [Suspect]
     Active Substance: DOXORUBICIN
     Indication: TRIPLE NEGATIVE BREAST CANCER
     Dosage: DAY 1 OF FOUR 21?DAY CYCLES DURING CHEMOTHERAPY SEGMENT 2 (60 MG/M2,1 IN 3 WK, ONGOING
     Route: 042
     Dates: start: 20151218
  2. VITAMIN C [Concomitant]
     Active Substance: ASCORBIC ACID
     Indication: PROPHYLAXIS
     Dosage: 500 MILLIGRAM DAILY; ONGOING
     Route: 048
     Dates: start: 20150929
  3. VITAMIN D [Concomitant]
     Active Substance: VITAMIN D NOS
     Indication: PROPHYLAXIS
     Dosage: 400 IU (INTERNATIONAL UNIT) DAILY; ONGOING
     Route: 048
     Dates: start: 20150929
  4. MAGNESIUM [Concomitant]
     Active Substance: MAGNESIUM
     Indication: PAIN IN EXTREMITY
     Dosage: 400 MILLIGRAM DAILY; ONGOING
     Route: 048
     Dates: start: 20150929
  5. PACLITAXEL. [Concomitant]
     Active Substance: PACLITAXEL
     Indication: TRIPLE NEGATIVE BREAST CANCER
     Dosage: DAY 1 OF 12 WEEKLY CYCLES DURING CHEMOTHERAPY SEGMENT 1 (80 MG/M2)
     Route: 042
     Dates: start: 20150925, end: 20151211
  6. DOLOPOSTERINE [Concomitant]
     Indication: ANAL INFECTION
     Dosage: DOSAGE FORMS,AS REQUIRED
     Route: 003
     Dates: start: 20151209, end: 20151218
  7. ICHTYOL SALVE [Concomitant]
     Indication: LOCALISED INFECTION
     Dosage: DOSAGE FORMS,AS REQUIRED
     Route: 003
     Dates: start: 20151229, end: 20160102
  8. BEPANTHEN [Concomitant]
     Indication: IMPAIRED HEALING
     Dosage: 3 DOSAGE FORMS DAILY;
     Dates: start: 20151204, end: 20151211
  9. CYCLOPHOSPHAMID [Suspect]
     Active Substance: CYCLOPHOSPHAMIDE
     Indication: TRIPLE NEGATIVE BREAST CANCER
     Dosage: DAY 1 OF FOUR 21?DAY CYCLES DURING CHEMOTHERAPY SEGMENT 2 (600 MG/M2,1 IN 3 WK, ONGOING
     Route: 042
     Dates: start: 20151218

REACTIONS (1)
  - Wrist fracture [Recovered/Resolved]

NARRATIVE: CASE EVENT DATE: 20160120
